FAERS Safety Report 10474790 (Version 3)
Quarter: 2015Q1

REPORT INFORMATION
  Report Type: Spontaneous
  Country: US (occurrence: US)
  Receive Date: 20140925
  Receipt Date: 20150331
  Transmission Date: 20150720
  Serious: Yes (Hospitalization, Disabling)
  Sender: FDA-Public Use
  Company Number: US-UNITED THERAPEUTICS-UNT-2014-006797

PATIENT
  Age: 52 Year
  Sex: Female
  Weight: 118.3 kg

DRUGS (3)
  1. REMODULIN [Suspect]
     Active Substance: TREPROSTINIL
     Indication: COR PULMONALE CHRONIC
     Dosage: 0.021 ?G/KG, CONTINUING
     Route: 041
     Dates: start: 20110915
  2. REMODULIN [Suspect]
     Active Substance: TREPROSTINIL
     Indication: SARCOIDOSIS
     Dosage: 0.021 ?G/KG, CONTINUING
     Route: 041
     Dates: start: 20131031
  3. REMODULIN [Suspect]
     Active Substance: TREPROSTINIL
     Dosage: 0.021 ?G/KG, CONTINUING
     Route: 041
     Dates: start: 20140311

REACTIONS (2)
  - Acute kidney injury [Recovered/Resolved with Sequelae]
  - Pulmonary hypertension [Not Recovered/Not Resolved]

NARRATIVE: CASE EVENT DATE: 20140829
